FAERS Safety Report 9443947 (Version 1)
Quarter: 2013Q3

REPORT INFORMATION
  Report Type: Spontaneous
  Country: US (occurrence: US)
  Receive Date: 20130807
  Receipt Date: 20130807
  Transmission Date: 20140515
  Serious: No
  Sender: FDA-Public Use
  Company Number: US-009507513-1307USA011556

PATIENT
  Age: 61 Year
  Sex: Female

DRUGS (6)
  1. VICTRELIS [Suspect]
     Indication: HEPATITIS C
     Dosage: 800 MG, Q8H
     Route: 048
     Dates: start: 20130706
  2. PEGASYS [Suspect]
     Dosage: UNK
  3. RIBASPHERE [Suspect]
     Dosage: UNK
     Route: 048
  4. ASCORBIC ACID [Concomitant]
  5. VITAMIN D (UNSPECIFIED) [Concomitant]
     Dosage: UNK
  6. VITAMINS (UNSPECIFIED) [Concomitant]

REACTIONS (2)
  - Asthenia [Unknown]
  - Platelet count decreased [Unknown]
